FAERS Safety Report 9212578 (Version 3)
Quarter: 2013Q3

REPORT INFORMATION
  Report Type: Spontaneous
  Country: US (occurrence: US)
  Receive Date: 20130405
  Receipt Date: 20130801
  Transmission Date: 20140515
  Serious: Yes (Hospitalization)
  Sender: FDA-Public Use
  Company Number: US-BIOGENIDEC-2013BI029943

PATIENT
  Age: 45 Year
  Sex: Female

DRUGS (2)
  1. AVONEX [Suspect]
     Indication: MULTIPLE SCLEROSIS
     Route: 030
  2. AVONEX [Suspect]
     Indication: MULTIPLE SCLEROSIS
     Route: 030
     Dates: start: 20130416

REACTIONS (22)
  - Spinal fracture [Recovered/Resolved]
  - Hysterectomy [Recovered/Resolved]
  - Cervical vertebral fracture [Recovered/Resolved]
  - Lumbar vertebral fracture [Recovered/Resolved]
  - Accident [Recovered/Resolved]
  - Fall [Recovered/Resolved]
  - Aortic aneurysm [Not Recovered/Not Resolved]
  - Renal failure chronic [Not Recovered/Not Resolved]
  - Spine malformation [Recovered/Resolved]
  - Gastric bypass [Recovered/Resolved]
  - Cognitive disorder [Not Recovered/Not Resolved]
  - Multiple sclerosis [Not Recovered/Not Resolved]
  - Central nervous system lesion [Not Recovered/Not Resolved]
  - Visual impairment [Not Recovered/Not Resolved]
  - Gait disturbance [Not Recovered/Not Resolved]
  - Vision blurred [Not Recovered/Not Resolved]
  - Amnesia [Unknown]
  - Herpes virus infection [Not Recovered/Not Resolved]
  - Intestinal obstruction [Unknown]
  - Pain [Unknown]
  - Emotional disorder [Not Recovered/Not Resolved]
  - Affect lability [Not Recovered/Not Resolved]
